FAERS Safety Report 9121828 (Version 1)
Quarter: 2013Q1

REPORT INFORMATION
  Report Type: Spontaneous
  Country: FR (occurrence: FR)
  Receive Date: 20130227
  Receipt Date: 20130227
  Transmission Date: 20140127
  Serious: Yes (Other)
  Sender: FDA-Public Use
  Company Number: 2013SP002604

PATIENT
  Age: 59 Year
  Sex: Female

DRUGS (14)
  1. FLUOROURACIL [Suspect]
     Indication: PANCREATIC CARCINOMA
     Dates: start: 20121121
  2. FLUOROURACIL [Suspect]
     Indication: PANCREATIC CARCINOMA
     Dates: start: 20121221, end: 20121221
  3. FLUOROURACIL [Suspect]
     Indication: PANCREATIC CARCINOMA
  4. OXALIPLATIN [Suspect]
     Indication: PANCREATIC CARCINOMA
     Dates: start: 20121121
  5. OXALIPLATIN [Suspect]
     Indication: PANCREATIC CARCINOMA
     Route: 042
     Dates: start: 20121221, end: 20121221
  6. IRINOTECAN HYDROCHLORIDE [Suspect]
     Indication: PANCREATIC CARCINOMA
     Dates: start: 20121121
  7. IRINOTECAN HYDROCHLORIDE [Suspect]
     Indication: PANCREATIC CARCINOMA
     Route: 042
     Dates: start: 20121221, end: 20121221
  8. IRINOTECAN HYDROCHLORIDE [Suspect]
     Indication: PANCREATIC CARCINOMA
  9. CALCIUM FOLINATE [Suspect]
     Indication: PANCREATIC CARCINOMA
     Route: 042
     Dates: start: 20121121
  10. CALCIUM FOLINATE [Suspect]
     Indication: PANCREATIC CARCINOMA
     Route: 042
     Dates: start: 20121221, end: 20121221
  11. CALCIUM FOLINATE [Suspect]
     Indication: PANCREATIC CARCINOMA
  12. FILGRASTIM [Suspect]
     Indication: NEUTROPENIA
     Dates: start: 20121221, end: 20121221
  13. FILGRASTIM [Suspect]
     Indication: NEUTROPENIA
  14. GRANULOCYTE COLONY STIMULATING FACTOR [Concomitant]

REACTIONS (1)
  - Hepatocellular injury [Not Recovered/Not Resolved]
